FAERS Safety Report 23166530 (Version 3)
Quarter: 2023Q4

REPORT INFORMATION
  Report Type: Spontaneous
  Country: VN (occurrence: VN)
  Receive Date: 20231109
  Receipt Date: 20231120
  Transmission Date: 20240110
  Serious: Yes (Life-Threatening, Other)
  Sender: FDA-Public Use
  Company Number: VN-009507513-2311VNM002429

PATIENT
  Age: 35 Year
  Sex: Male
  Weight: 60 kg

DRUGS (5)
  1. BRIDION [Suspect]
     Active Substance: SUGAMMADEX
     Indication: Muscle relaxant therapy
     Dosage: 200 MILLIGRAM (ALSO REPORTED AS 4MG/KG), ONCE
     Dates: start: 20231101, end: 20231101
  2. BRIDION [Suspect]
     Active Substance: SUGAMMADEX
     Dosage: 100 MILLIGRAM, ONCE
     Dates: start: 20231101, end: 20231101
  3. SEVOFLURANE [Concomitant]
     Active Substance: SEVOFLURANE
     Dosage: UNK
  4. MORPHINE [Concomitant]
     Active Substance: MORPHINE
     Dosage: UNK
  5. FENTANYL [Concomitant]
     Active Substance: FENTANYL\FENTANYL CITRATE
     Dosage: UNK

REACTIONS (3)
  - Respiratory failure [Recovered/Resolved]
  - Recurrence of neuromuscular blockade [Recovered/Resolved]
  - Product use in unapproved indication [Unknown]

NARRATIVE: CASE EVENT DATE: 20231101
